FAERS Safety Report 25853347 (Version 1)
Quarter: 2025Q3

REPORT INFORMATION
  Report Type: Spontaneous
  Country: US (occurrence: None)
  Receive Date: 20250926
  Receipt Date: 20250926
  Transmission Date: 20251021
  Serious: Yes (Hospitalization)
  Sender: ALKERMES
  Company Number: US-ALKERMES INC.-ALK-2025-002449

PATIENT
  Age: 38 Year
  Sex: Female

DRUGS (1)
  1. VIVITROL [Suspect]
     Active Substance: NALTREXONE
     Indication: Alcohol use

REACTIONS (6)
  - Diarrhoea [Unknown]
  - Fatigue [Unknown]
  - Mobility decreased [Unknown]
  - Hallucination, auditory [Unknown]
  - Hyperhidrosis [Unknown]
  - Alcohol use [Unknown]

NARRATIVE: CASE EVENT DATE: 20250701
